FAERS Safety Report 7583370-5 (Version None)
Quarter: 2011Q2

REPORT INFORMATION
  Report Type: 
  Country: None (occurrence: None)
  Receive Date: 20110623
  Receipt Date: 20110607
  Transmission Date: 20111010
  Serious: Yes (Death)
  Sender: FDA-Public Use
  Company Number: VALP20110003

PATIENT
  Sex: Female

DRUGS (3)
  1. CARBAMAZEPINE [Concomitant]
  2. VALPROIC ACID [Suspect]
     Indication: EPILEPSY
     Dosage: ORAL
     Route: 048
  3. VIGABATRIN (VIGABATRIN) (VIGABATRIN) [Concomitant]

REACTIONS (3)
  - RENAL FAILURE [None]
  - SUDDEN DEATH [None]
  - PANCREATITIS [None]
